FAERS Safety Report 4676141-0 (Version None)
Quarter: 2005Q2

REPORT INFORMATION
  Report Type: 
  Country: None (occurrence: None)
  Receive Date: 20050527
  Receipt Date: 20050405
  Transmission Date: 20051028
  Serious: No
  Sender: FDA-Public Use
  Company Number: US-GLAXOSMITHKLINE-A0552815A

PATIENT
  Age: 15 Year
  Sex: Male
  Weight: 61.4 kg

DRUGS (3)
  1. WELLBUTRIN XL [Suspect]
     Indication: DEPRESSION
     Dosage: 150MG PER DAY
     Route: 048
     Dates: start: 20050401
  2. AMOXIL [Concomitant]
     Dosage: 500MG TWICE PER DAY
     Route: 048
     Dates: start: 20050329, end: 20050401
  3. ADVIL [Concomitant]
     Dosage: 200MG TWICE PER DAY
     Dates: start: 20050329

REACTIONS (1)
  - PALPITATIONS [None]
